FAERS Safety Report 20660213 (Version 1)
Quarter: 2022Q1

REPORT INFORMATION
  Report Type: Report from Study
  Country: US (occurrence: US)
  Receive Date: 20220331
  Receipt Date: 20220331
  Transmission Date: 20220423
  Serious: Yes (Hospitalization, Other)
  Sender: FDA-Public Use
  Company Number: US-KOREA IPSEN Pharma-2022-08762

PATIENT
  Age: 61 Year
  Sex: Male

DRUGS (1)
  1. SOMATULINE DEPOT [Suspect]
     Active Substance: LANREOTIDE ACETATE
     Indication: Carcinoid tumour
     Dosage: 120 MG/0.5 ML
     Route: 058
     Dates: start: 202006

REACTIONS (10)
  - Spinal fracture [Recovered/Resolved]
  - Neoplasm progression [Recovering/Resolving]
  - Asthenia [Recovering/Resolving]
  - Injection site mass [Recovering/Resolving]
  - Memory impairment [Recovering/Resolving]
  - Emotional distress [Recovering/Resolving]
  - Weight decreased [Recovering/Resolving]
  - Muscle strain [Recovering/Resolving]
  - Candida infection [Recovering/Resolving]
  - Fatigue [Recovered/Resolved]

NARRATIVE: CASE EVENT DATE: 20200601
